FAERS Safety Report 7214486-0 (Version None)
Quarter: 2011Q1

REPORT INFORMATION
  Report Type: 
  Country: None (occurrence: None)
  Receive Date: 20110107
  Receipt Date: 20110105
  Transmission Date: 20110831
  Serious: Yes (Hospitalization)
  Sender: FDA-Public Use
  Company Number: IT-NOVOPROD-320767

PATIENT
  Sex: Male

DRUGS (6)
  1. ACTRAPID [Suspect]
     Indication: DIABETES MELLITUS
     Dosage: 26 U, QD
     Dates: start: 20090701
  2. TRIATEC                            /00116401/ [Concomitant]
     Dosage: 1 TAB, QD
  3. LANTUS [Concomitant]
     Dosage: 10 U, QD
     Route: 058
     Dates: start: 20090701
  4. TAPAZOLE [Concomitant]
     Dosage: 1 TAB, QD
  5. LASIX M [Concomitant]
     Dosage: 125 MG, UNK
  6. ALDACTONE [Concomitant]
     Dosage: 1 CAPS, QD

REACTIONS (2)
  - CARDIAC FAILURE [None]
  - HYPOGLYCAEMIA [None]
